FAERS Safety Report 13827563 (Version 1)
Quarter: 2017Q3

REPORT INFORMATION
  Report Type: Spontaneous
  Country: US (occurrence: US)
  Receive Date: 20170802
  Receipt Date: 20170802
  Transmission Date: 20171127
  Serious: Yes (Hospitalization)
  Sender: FDA-Public Use
  Company Number: US-ASTRAZENECA-2017SE78538

PATIENT
  Sex: Female
  Weight: 55.3 kg

DRUGS (1)
  1. ARIMIDEX [Suspect]
     Active Substance: ANASTROZOLE
     Indication: DEPRESSION
     Route: 048

REACTIONS (17)
  - Urinary tract infection [Unknown]
  - Fatigue [Not Recovered/Not Resolved]
  - Vision blurred [Not Recovered/Not Resolved]
  - Dizziness [Not Recovered/Not Resolved]
  - Renal disorder [Not Recovered/Not Resolved]
  - Nausea [Recovered/Resolved]
  - Haemorrhagic stroke [Unknown]
  - Muscle atrophy [Not Recovered/Not Resolved]
  - Decreased interest [Unknown]
  - Off label use [Unknown]
  - Coma [Unknown]
  - Malaise [Not Recovered/Not Resolved]
  - Blood cholesterol increased [Not Recovered/Not Resolved]
  - Myocardial infarction [Unknown]
  - Bone disorder [Not Recovered/Not Resolved]
  - Decreased appetite [Not Recovered/Not Resolved]
  - Product use issue [Unknown]
